FAERS Safety Report 19292840 (Version 1)
Quarter: 2021Q2

REPORT INFORMATION
  Report Type: Spontaneous
  Country: US (occurrence: US)
  Receive Date: 20210524
  Receipt Date: 20210524
  Transmission Date: 20210717
  Serious: No
  Sender: FDA-Public Use
  Company Number: US-TEVA-2021-US-1908249

PATIENT
  Sex: Male

DRUGS (2)
  1. PIOGLITAZONE. [Suspect]
     Active Substance: PIOGLITAZONE
     Route: 065
  2. PIOGLITAZONE. [Suspect]
     Active Substance: PIOGLITAZONE
     Route: 065

REACTIONS (3)
  - Weight increased [Unknown]
  - Joint swelling [Not Recovered/Not Resolved]
  - Diarrhoea [Unknown]
